FAERS Safety Report 5812431-3 (Version None)
Quarter: 2008Q3

REPORT INFORMATION
  Report Type: 
  Country: None (occurrence: None)
  Receive Date: 20080711
  Receipt Date: 20080702
  Transmission Date: 20090109
  Serious: Yes (Death)
  Sender: FDA-Public Use
  Company Number: GXKR2008GB06221

PATIENT
  Age: 67 Year
  Sex: Male

DRUGS (2)
  1. GLYBURIDE [Suspect]
     Indication: DIABETES MELLITUS
     Dosage: 20 MG/DAILY, ORAL
     Route: 048
  2. WELLDORM (DICHLORALPHENAZONE) [Concomitant]

REACTIONS (11)
  - BRONCHOPNEUMONIA [None]
  - DRUG HYPERSENSITIVITY [None]
  - HAEMOPHILUS INFECTION [None]
  - HEPATITIS CHOLESTATIC [None]
  - IMPAIRED HEALING [None]
  - JAUNDICE CHOLESTATIC [None]
  - STAPHYLOCOCCAL INFECTION [None]
  - STEVENS-JOHNSON SYNDROME [None]
  - SUDDEN DEATH [None]
  - TEMPORAL ARTERITIS [None]
  - TOXIC SKIN ERUPTION [None]
